FAERS Safety Report 7076341-9 (Version None)
Quarter: 2010Q4

REPORT INFORMATION
  Report Type: 
  Country: None (occurrence: None)
  Receive Date: 20101101
  Receipt Date: 20101025
  Transmission Date: 20110411
  Serious: Yes (Hospitalization, Other)
  Sender: FDA-Public Use
  Company Number: US-JNJFOC-20100302584

PATIENT
  Sex: Male

DRUGS (3)
  1. LEVAQUIN [Suspect]
     Indication: KIDNEY INFECTION
     Route: 042
  2. LEVAQUIN [Suspect]
     Route: 048
  3. STEROIDS NOS [Suspect]
     Indication: INFECTION
     Route: 065

REACTIONS (5)
  - CONTRAINDICATION TO MEDICAL TREATMENT [None]
  - DELIRIUM [None]
  - HALLUCINATION [None]
  - LIGAMENT INJURY [None]
  - TENDON RUPTURE [None]
